FAERS Safety Report 16833186 (Version 1)
Quarter: 2019Q4

REPORT INFORMATION
  Report Type: Spontaneous
  Country: US (occurrence: US)
  Receive Date: 20190920
  Receipt Date: 20190920
  Transmission Date: 20200122
  Serious: Yes (Hospitalization)
  Sender: FDA-Public Use
  Company Number: None

PATIENT
  Age: 65 Year
  Sex: Male
  Weight: 85.9 kg

DRUGS (2)
  1. EMPAGLIFLOZIN [Suspect]
     Active Substance: EMPAGLIFLOZIN
     Indication: DIABETES MELLITUS
     Route: 048
     Dates: start: 20190619, end: 20190831
  2. METFORMIN [Suspect]
     Active Substance: METFORMIN HYDROCHLORIDE
     Indication: DIABETES MELLITUS
     Route: 048
     Dates: start: 20180914, end: 20190831

REACTIONS (6)
  - Heart rate increased [None]
  - Hyperglycaemia [None]
  - Knee operation [None]
  - Acute kidney injury [None]
  - Acute myocardial infarction [None]
  - Diabetic ketoacidosis [None]

NARRATIVE: CASE EVENT DATE: 20190831
